FAERS Safety Report 17780937 (Version 1)
Quarter: 2020Q2

REPORT INFORMATION
  Report Type: Spontaneous
  Country: US (occurrence: US)
  Receive Date: 20200513
  Receipt Date: 20200513
  Transmission Date: 20200714
  Serious: Yes (Hospitalization)
  Sender: FDA-Public Use
  Company Number: None

PATIENT
  Age: 59 Year
  Sex: Male
  Weight: 74 kg

DRUGS (2)
  1. ALPROSTADIL (ALPROSTADIL 10MCG/CARTRIDGE INJ, SYSTEM) [Suspect]
     Active Substance: ALPROSTADIL
     Indication: ERECTILE DYSFUNCTION
     Dates: start: 20190801, end: 20200328
  2. AMPHETAMINE/DEXTROAMPHETAMINE (AMPHETAMINE/DEXTROAMPHETAMINE 30MG TAB) [Suspect]
     Active Substance: AMPHETAMINE\DEXTROAMPHETAMINE
     Indication: DEPRESSION
     Dates: start: 20140514, end: 20200328

REACTIONS (2)
  - Priapism [None]
  - Penile pain [None]

NARRATIVE: CASE EVENT DATE: 20200328
